FAERS Safety Report 5077335-5 (Version None)
Quarter: 2006Q3

REPORT INFORMATION
  Report Type: 
  Country: None (occurrence: None)
  Receive Date: 20060810
  Receipt Date: 20060127
  Transmission Date: 20061208
  Serious: No
  Sender: FDA-Public Use
  Company Number: US-GLAXOSMITHKLINE-A0591264A

PATIENT
  Age: 61 Year
  Sex: Female

DRUGS (2)
  1. PAXIL [Suspect]
     Indication: DEPRESSION
     Dosage: 60MG AT NIGHT
     Route: 048
     Dates: start: 20010101
  2. SYNTHROID [Concomitant]

REACTIONS (3)
  - ORAL DISCOMFORT [None]
  - ORAL MUCOSAL BLISTERING [None]
  - ORAL PAIN [None]
